FAERS Safety Report 9193601 (Version 2)
Quarter: 2013Q4

REPORT INFORMATION
  Report Type: Spontaneous
  Country: FR (occurrence: FR)
  Receive Date: 20130327
  Receipt Date: 20131227
  Transmission Date: 20140711
  Serious: Yes (Death, Life-Threatening, Hospitalization)
  Sender: FDA-Public Use
  Company Number: FR-BRISTOL-MYERS SQUIBB COMPANY-18701037

PATIENT
  Age: 90 Year
  Sex: Female

DRUGS (12)
  1. COUMADINE [Suspect]
     Indication: ATRIAL FIBRILLATION
     Dosage: COUMADINE 2 MG
     Dates: start: 20130216, end: 20130222
  2. LOVENOX [Suspect]
     Indication: ATRIAL FIBRILLATION
     Dates: start: 20130130, end: 20130220
  3. CLAMOXYL [Suspect]
     Route: 048
     Dates: start: 20130215, end: 20130221
  4. MOPRAL [Concomitant]
  5. CRESTOR [Concomitant]
  6. ATENOLOL [Concomitant]
  7. LEVOTHYROX [Concomitant]
  8. TRIATEC [Concomitant]
  9. MIANSERIN [Concomitant]
  10. LASILIX [Concomitant]
  11. FORLAX [Concomitant]
  12. RIVOTRIL [Concomitant]

REACTIONS (4)
  - Shock haemorrhagic [Fatal]
  - Gastrointestinal haemorrhage [Fatal]
  - Muscle haemorrhage [Fatal]
  - Fall [Unknown]
